FAERS Safety Report 14155526 (Version 2)
Quarter: 2017Q4

REPORT INFORMATION
  Report Type: Report from Study
  Country: MX (occurrence: MX)
  Receive Date: 20171103
  Receipt Date: 20171130
  Transmission Date: 20180321
  Serious: Yes (Hospitalization, Congenital Anomaly)
  Sender: FDA-Public Use
  Company Number: MX-UCBSA-2017043367

PATIENT
  Age: 0 Day
  Sex: Male
  Weight: 8.5 kg

DRUGS (7)
  1. DIGOXIN. [Concomitant]
     Active Substance: DIGOXIN
     Indication: CARDIAC DISORDER
     Dosage: 0.8 ML, ONCE DAILY (QD)
     Dates: start: 201606
  2. SPIRONOLACTONE. [Concomitant]
     Active Substance: SPIRONOLACTONE
     Indication: CARDIAC DISORDER
     Dosage: 0.8 ML, 2X/DAY (BID)
     Dates: start: 201606
  3. OMEPRAZOLE. [Concomitant]
     Active Substance: OMEPRAZOLE
     Indication: PRODUCT USED FOR UNKNOWN INDICATION
  4. LEVETIRACETAM. [Suspect]
     Active Substance: LEVETIRACETAM
     Dosage: 1.5 ML, 2X/DAY (BID)
     Dates: start: 2016
  5. LEVETIRACETAM. [Suspect]
     Active Substance: LEVETIRACETAM
     Dosage: 1.7 ML, 2X/DAY (BID)
     Route: 048
  6. LEVETIRACETAM. [Suspect]
     Active Substance: LEVETIRACETAM
     Dosage: 2.5 ML, 2X/DAY (BID)
  7. LEVETIRACETAM. [Suspect]
     Active Substance: LEVETIRACETAM
     Indication: SEIZURE
     Dosage: 0.5 ML, 2X/DAY (BID)
     Dates: start: 20160204, end: 2016

REACTIONS (4)
  - Cardiomyopathy [Recovering/Resolving]
  - Off label use [Unknown]
  - Congenital anomaly [Recovering/Resolving]
  - Sepsis [Recovered/Resolved]

NARRATIVE: CASE EVENT DATE: 20160204
